FAERS Safety Report 7058922-1 (Version None)
Quarter: 2010Q4

REPORT INFORMATION
  Report Type: 
  Country: None (occurrence: None)
  Receive Date: 20101024
  Receipt Date: 20101011
  Transmission Date: 20110411
  Serious: Yes (Hospitalization)
  Sender: FDA-Public Use
  Company Number: US-ELI_LILLY_AND_COMPANY-US201010003282

PATIENT
  Sex: Female

DRUGS (8)
  1. FORTEO [Suspect]
     Indication: OSTEOPOROSIS
     Dosage: 20 UG, DAILY (1/D)
     Dates: start: 20100709
  2. HYDROCORTISONE [Concomitant]
     Dosage: 40 MG, DAILY (1/D)
  3. FLORINEF [Concomitant]
     Dosage: 0.1 MG, DAILY (1/D)
  4. ZOLOFT [Concomitant]
     Dosage: 100 MG, DAILY (1/D)
  5. XALATAN [Concomitant]
  6. LOTRIL                             /00574902/ [Concomitant]
  7. PREVACID [Concomitant]
  8. PERCOCET [Concomitant]

REACTIONS (2)
  - PAIN IN EXTREMITY [None]
  - PATHOLOGICAL FRACTURE [None]
